FAERS Safety Report 13062694 (Version 9)
Quarter: 2017Q2

REPORT INFORMATION
  Report Type: Spontaneous
  Country: US (occurrence: US)
  Receive Date: 20161226
  Receipt Date: 20170507
  Transmission Date: 20170830
  Serious: Yes (Hospitalization, Other)
  Sender: FDA-Public Use
  Company Number: PHEH2016US032768

PATIENT
  Age: 65 Year
  Sex: Female

DRUGS (4)
  1. TRILEPTAL [Suspect]
     Active Substance: OXCARBAZEPINE
     Dosage: 300 MG, TID
     Route: 048
  2. TRILEPTAL [Suspect]
     Active Substance: OXCARBAZEPINE
     Indication: PRODUCT USED FOR UNKNOWN INDICATION
     Dosage: 300 MG, QD
     Route: 048
  3. TRILEPTAL [Suspect]
     Active Substance: OXCARBAZEPINE
     Dosage: HALF OF THE DOSE OF THE MEDICATION TUESDAY NIGHT AND WEDNESDAY MORNING
     Route: 048
  4. TRILEPTAL [Suspect]
     Active Substance: OXCARBAZEPINE
     Dosage: 300 MG, UNK
     Route: 048

REACTIONS (11)
  - Palpitations [Unknown]
  - Product dosage form issue [Unknown]
  - Cerebrovascular accident [Unknown]
  - Generalised tonic-clonic seizure [Unknown]
  - Malaise [Unknown]
  - Myocardial infarction [Unknown]
  - Hypertension [Unknown]
  - Hypersensitivity [Unknown]
  - Feeling abnormal [Unknown]
  - Dysgraphia [Unknown]
  - Tremor [Unknown]

NARRATIVE: CASE EVENT DATE: 20161225
